FAERS Safety Report 8849744 (Version 1)
Quarter: 2012Q4

REPORT INFORMATION
  Report Type: 
  Country: GB (occurrence: GB)
  Receive Date: 20121019
  Receipt Date: 20121019
  Transmission Date: 20130627
  Serious: Yes (Other)
  Sender: FDA-Public Use
  Company Number: GB-JNJFOC-20111108879

PATIENT
  Age: 30 Year
  Sex: Female

DRUGS (1)
  1. MEBENDAZOLE [Suspect]
     Indication: ENTEROBIASIS
     Route: 048

REACTIONS (4)
  - Prolonged pregnancy [Recovered/Resolved]
  - Exposure during pregnancy [Recovered/Resolved]
  - Off label use [Unknown]
  - Induced labour [None]
